FAERS Safety Report 7100342-5 (Version None)
Quarter: 2010Q4

REPORT INFORMATION
  Report Type: 
  Country: None (occurrence: None)
  Receive Date: 20101112
  Receipt Date: 20101104
  Transmission Date: 20110411
  Serious: Yes (Death)
  Sender: FDA-Public Use
  Company Number: JP-MERCK-1011USA01145

PATIENT
  Age: 86 Year
  Sex: Female

DRUGS (4)
  1. JANUVIA [Suspect]
     Indication: DIABETES MELLITUS
     Route: 048
     Dates: start: 20100423, end: 20100727
  2. DIOVAN [Concomitant]
     Indication: HYPERTENSION
     Route: 048
  3. ACTOS [Concomitant]
     Route: 065
  4. METFORMIN HCL [Concomitant]
     Route: 065

REACTIONS (2)
  - CARDIAC FAILURE [None]
  - PULMONARY OEDEMA [None]
